FAERS Safety Report 13833723 (Version 1)
Quarter: 2017Q3

REPORT INFORMATION
  Report Type: Spontaneous
  Country: CN (occurrence: CN)
  Receive Date: 20170804
  Receipt Date: 20170804
  Transmission Date: 20171127
  Serious: Yes (Other)
  Sender: FDA-Public Use
  Company Number: CN-PFIZER INC-2017337096

PATIENT
  Age: 72 Year
  Sex: Female
  Weight: 70 kg

DRUGS (3)
  1. ALPROSTADIL. [Concomitant]
     Active Substance: ALPROSTADIL
     Dosage: 10 UG, 1X/DAY
     Route: 041
     Dates: start: 20170608, end: 20170615
  2. LIPITOR [Suspect]
     Active Substance: ATORVASTATIN CALCIUM
     Indication: ARTERIOSCLEROSIS
     Dosage: 20 MG, 1X/DAY
     Route: 048
     Dates: start: 20170608, end: 20170616
  3. CLOPIDOGREL HYDROGEN SULPHATE [Concomitant]
     Active Substance: CLOPIDOGREL BISULFATE
     Indication: THROMBOSIS PROPHYLAXIS
     Dosage: 75 MG, 1X/DAY
     Route: 048
     Dates: start: 20170608, end: 20170622

REACTIONS (1)
  - Myocardial necrosis marker increased [Recovering/Resolving]

NARRATIVE: CASE EVENT DATE: 20170615
